FAERS Safety Report 18589935 (Version 1)
Quarter: 2020Q4

REPORT INFORMATION
  Report Type: Spontaneous
  Country: US (occurrence: US)
  Receive Date: 20201207
  Receipt Date: 20201207
  Transmission Date: 20210114
  Serious: Yes (Death)
  Sender: FDA-Public Use
  Company Number: None

PATIENT
  Age: 59 Year
  Sex: Female

DRUGS (13)
  1. ESCITALOPRAM [Concomitant]
     Active Substance: ESCITALOPRAM OXALATE
  2. PREDNISONE. [Concomitant]
     Active Substance: PREDNISONE
  3. AMBRISENTAN 10MG TAB [Suspect]
     Active Substance: AMBRISENTAN
     Indication: PULMONARY ARTERIAL HYPERTENSION
     Route: 048
     Dates: start: 20171220, end: 20201118
  4. ALPRAZOLAM. [Concomitant]
     Active Substance: ALPRAZOLAM
  5. METHYLPRED [Concomitant]
     Active Substance: METHYLPREDNISOLONE
  6. BUDES/FORMOT AER [Concomitant]
  7. TRAZODONE [Concomitant]
     Active Substance: TRAZODONE HYDROCHLORIDE
  8. METHOTREXATE. [Concomitant]
     Active Substance: METHOTREXATE
  9. BUSPIRONE [Concomitant]
     Active Substance: BUSPIRONE HYDROCHLORIDE
  10. ALBUTEROL AER [Concomitant]
     Active Substance: ALBUTEROL
  11. TADALAFIL 20MG TAB [Suspect]
     Active Substance: TADALAFIL
     Indication: PULMONARY ARTERIAL HYPERTENSION
     Route: 048
     Dates: start: 20180327, end: 20201118
  12. FOLIC ACID. [Concomitant]
     Active Substance: FOLIC ACID
  13. XELJANZ XR [Concomitant]
     Active Substance: TOFACITINIB CITRATE

REACTIONS (1)
  - Death [None]

NARRATIVE: CASE EVENT DATE: 20201118
